FAERS Safety Report 9896464 (Version 1)
Quarter: 2014Q1

REPORT INFORMATION
  Report Type: Spontaneous
  Country: US (occurrence: US)
  Receive Date: 20140213
  Receipt Date: 20140213
  Transmission Date: 20141002
  Serious: No
  Sender: FDA-Public Use
  Company Number: US-BRISTOL-MYERS SQUIBB COMPANY-17452822

PATIENT
  Age: 50 Year
  Sex: Female
  Weight: 65.76 kg

DRUGS (8)
  1. ABATACEPT SUBQ INJECTION 125MG/ML [Suspect]
     Indication: RHEUMATOID ARTHRITIS
     Route: 058
     Dates: start: 20121010, end: 20130110
  2. CELEBREX [Concomitant]
  3. RANITIDINE [Concomitant]
  4. SINGULAIR [Concomitant]
  5. SYNTHROID [Concomitant]
  6. TRAMADOL [Concomitant]
  7. VITAMIN D [Concomitant]
  8. ZYRTEC [Concomitant]

REACTIONS (1)
  - Drug ineffective [Unknown]
